FAERS Safety Report 16173884 (Version 1)
Quarter: 2019Q2

REPORT INFORMATION
  Report Type: Spontaneous
  Country: US (occurrence: US)
  Receive Date: 20190306
  Receipt Date: 20190306
  Transmission Date: 20190711
  Serious: No
  Sender: FDA-Public Use
  Company Number: None

PATIENT
  Age: 62 Year
  Sex: Female

DRUGS (1)
  1. COSENTYX [Suspect]
     Active Substance: SECUKINUMAB
     Indication: PSORIATIC ARTHROPATHY
     Dosage: EVERY 7 DAYS
     Dates: start: 20190105

REACTIONS (3)
  - Hot flush [None]
  - Body temperature increased [None]
  - Inappropriate schedule of product administration [None]

NARRATIVE: CASE EVENT DATE: 20190106
